FAERS Safety Report 6120591-2 (Version None)
Quarter: 2009Q1

REPORT INFORMATION
  Report Type: 
  Country: None (occurrence: None)
  Receive Date: 20090312
  Receipt Date: 20090312
  Transmission Date: 20090719
  Serious: Yes (Life-Threatening)
  Sender: FDA-Public Use
  Company Number: None

PATIENT
  Age: 6 Year
  Sex: Female
  Weight: 24.9478 kg

DRUGS (1)
  1. TAMIFLU [Suspect]
     Indication: INFLUENZA
     Dosage: 5 ML BY MOUTH TWICE PER DAY PO
     Route: 048
     Dates: start: 20090310, end: 20090310

REACTIONS (6)
  - ANAPHYLACTIC SHOCK [None]
  - COUGH [None]
  - DYSPNOEA [None]
  - ERYTHEMA [None]
  - LETHARGY [None]
  - PALPITATIONS [None]
